FAERS Safety Report 24131986 (Version 1)
Quarter: 2024Q3

REPORT INFORMATION
  Report Type: Other
  Country: IN (occurrence: IN)
  Receive Date: 20240724
  Receipt Date: 20240724
  Transmission Date: 20241017
  Serious: Yes (Life-Threatening)
  Sender: B BRAUN
  Company Number: IN-B.Braun Medical Inc.-2159524

PATIENT
  Age: 4 Year
  Sex: Female

DRUGS (3)
  1. DEXTROSE [Suspect]
     Active Substance: DEXTROSE\DEXTROSE MONOHYDRATE
     Indication: Hypoglycaemia
  2. DISULFIRAM [Concomitant]
     Active Substance: DISULFIRAM
  3. Intravenous fluids [Concomitant]

REACTIONS (1)
  - Drug ineffective [Unknown]
